FAERS Safety Report 4318682-1 (Version None)
Quarter: 2004Q1

REPORT INFORMATION
  Report Type: 
  Country: None (occurrence: None)
  Receive Date: 20040315
  Receipt Date: 20040301
  Transmission Date: 20041129
  Serious: Yes (Hospitalization)
  Sender: FDA-Public Use
  Company Number: A108441

PATIENT
  Age: 63 Year
  Sex: Female

DRUGS (4)
  1. FELDENE [Suspect]
     Indication: ARTHRALGIA
     Dosage: 40 MG (BID), ORAL
     Route: 048
     Dates: start: 20010101, end: 20010301
  2. NOLOTIL /NOR/ (DEXTROPROPOXYPHENE, METAMIZOLE MAGNESIUM) [Suspect]
     Indication: PAIN IN EXTREMITY
     Dosage: 1725 MG (575MG TID), ORAL
     Route: 048
     Dates: start: 20010101, end: 20010301
  3. CO-CODAMOL (CODEINE PHOSPHATE, PARACETAMOL) [Concomitant]
  4. CIPROFLOXACIN [Concomitant]

REACTIONS (2)
  - MOUTH ULCERATION [None]
  - NEUTROPENIA [None]
